FAERS Safety Report 14143102 (Version 1)
Quarter: 2017Q4

REPORT INFORMATION
  Report Type: Report from Study
  Country: US (occurrence: US)
  Receive Date: 20171030
  Receipt Date: 20171030
  Transmission Date: 20180321
  Serious: Yes (Other)
  Sender: FDA-Public Use
  Company Number: US-BRISTOL-MYERS SQUIBB COMPANY-BMS-2017-094463

PATIENT
  Sex: Female

DRUGS (2)
  1. ABATACEPT [Suspect]
     Active Substance: ABATACEPT
     Indication: RHEUMATOID ARTHRITIS
     Dosage: 125 MG, QWK
     Route: 058
  2. VALTREX [Concomitant]
     Active Substance: VALACYCLOVIR HYDROCHLORIDE
     Indication: PRODUCT USED FOR UNKNOWN INDICATION
     Dosage: UNK
     Route: 065

REACTIONS (10)
  - Deafness [Unknown]
  - Pain in extremity [Unknown]
  - Rash pruritic [Unknown]
  - Chapped lips [Unknown]
  - Aphthous ulcer [Unknown]
  - Tinnitus [Unknown]
  - Rash [Unknown]
  - Ear congestion [Unknown]
  - Flushing [Unknown]
  - Herpes simplex [Unknown]
